FAERS Safety Report 5909013-1 (Version None)
Quarter: 2008Q4

REPORT INFORMATION
  Report Type: 
  Country: None (occurrence: None)
  Receive Date: 20081006
  Receipt Date: 20080924
  Transmission Date: 20090506
  Serious: Yes (Other)
  Sender: FDA-Public Use
  Company Number: JP-ROCHE-555730

PATIENT
  Sex: Female

DRUGS (8)
  1. PEGASYS [Suspect]
     Route: 058
     Dates: start: 20071109, end: 20080321
  2. COPEGUS [Suspect]
     Dosage: DIVIDED INTO 2 DOSES
     Route: 048
     Dates: start: 20071109, end: 20080321
  3. ALOSENN [Concomitant]
     Route: 048
     Dates: start: 20071207, end: 20080103
  4. DEPAS [Concomitant]
     Route: 048
     Dates: start: 20080111, end: 20080124
  5. DEPAS [Concomitant]
     Route: 048
     Dates: start: 20080307, end: 20080403
  6. LANSOPRAZOLE [Concomitant]
     Route: 048
     Dates: start: 20080404
  7. URSO 250 [Concomitant]
     Route: 048
     Dates: start: 20080502, end: 20080613
  8. URSO 250 [Concomitant]
     Route: 048
     Dates: start: 20080614

REACTIONS (1)
  - INTERSTITIAL LUNG DISEASE [None]
